FAERS Safety Report 6120326-3 (Version None)
Quarter: 2009Q1

REPORT INFORMATION
  Report Type: 
  Country: None (occurrence: None)
  Receive Date: 20090312
  Receipt Date: 20090312
  Transmission Date: 20090719
  Serious: Yes (Other)
  Sender: FDA-Public Use
  Company Number: None

PATIENT
  Age: 55 Year
  Sex: Male

DRUGS (2)
  1. SYMLIN [Suspect]
     Indication: DIABETES MELLITUS
     Dosage: 10 UNITS (60 MCG) UNDER THE SKIN 3 TIMES A DAY WITH MEALS
  2. /. [Concomitant]

REACTIONS (1)
  - MEDICATION ERROR [None]
